FAERS Safety Report 21994006 (Version 3)
Quarter: 2024Q1

REPORT INFORMATION
  Report Type: Spontaneous
  Country: US (occurrence: US)
  Receive Date: 20230215
  Receipt Date: 20240311
  Transmission Date: 20240410
  Serious: No
  Sender: FDA-Public Use
  Company Number: US-GSK-US2023023182

PATIENT
  Age: 69 Year
  Sex: Female

DRUGS (1)
  1. NUCALA [Suspect]
     Active Substance: MEPOLIZUMAB
     Indication: Asthma
     Dosage: 100 MG
     Dates: start: 202212, end: 202212

REACTIONS (4)
  - Cough [Unknown]
  - Wheezing [Unknown]
  - Dyspnoea [Unknown]
  - Product dose omission issue [Unknown]

NARRATIVE: CASE EVENT DATE: 20240201
